FAERS Safety Report 14081037 (Version 1)
Quarter: 2017Q4

REPORT INFORMATION
  Report Type: Spontaneous
  Country: US (occurrence: US)
  Receive Date: 20171012
  Receipt Date: 20171012
  Transmission Date: 20180321
  Serious: Yes (Other)
  Sender: FDA-Public Use
  Company Number: None

PATIENT
  Age: 68 Year
  Sex: Male
  Weight: 72.9 kg

DRUGS (1)
  1. OMEPRAZOLE. [Suspect]
     Active Substance: OMEPRAZOLE
     Indication: GASTROOESOPHAGEAL REFLUX DISEASE
     Route: 048
     Dates: start: 20160226, end: 20170920

REACTIONS (8)
  - Abdominal pain [None]
  - Economic problem [None]
  - Social problem [None]
  - Quality of life decreased [None]
  - Back pain [None]
  - Flatulence [None]
  - Asthenia [None]
  - Dyskinesia [None]

NARRATIVE: CASE EVENT DATE: 20170920
